FAERS Safety Report 16577411 (Version 1)
Quarter: 2019Q3

REPORT INFORMATION
  Report Type: Spontaneous
  Country: US (occurrence: US)
  Receive Date: 20190715
  Receipt Date: 20190715
  Transmission Date: 20191004
  Serious: No
  Sender: FDA-Public Use
  Company Number: None

PATIENT

DRUGS (2)
  1. SEROQUEL [Suspect]
     Active Substance: QUETIAPINE FUMARATE
  2. RISPERDONE [Suspect]
     Active Substance: RISPERIDONE

REACTIONS (3)
  - Restlessness [None]
  - Agitation [None]
  - Rash [None]
